FAERS Safety Report 5377523-4 (Version None)
Quarter: 2007Q3

REPORT INFORMATION
  Report Type: 
  Country: None (occurrence: None)
  Receive Date: 20070703
  Receipt Date: 20070627
  Transmission Date: 20080115
  Serious: Yes (Other)
  Sender: FDA-Public Use
  Company Number: PHBS2007JP10992

PATIENT
  Age: 12 Year
  Sex: Male

DRUGS (4)
  1. TEGRETOL [Suspect]
     Indication: HEMIPLEGIA
     Route: 048
  2. VALPROATE SODIUM [Concomitant]
     Route: 065
  3. CLONAZEPAM [Concomitant]
     Route: 065
  4. CLOBAZAM [Concomitant]
     Route: 065

REACTIONS (2)
  - CONVULSION [None]
  - SOMNOLENCE [None]
